FAERS Safety Report 8176238-7 (Version None)
Quarter: 2012Q1

REPORT INFORMATION
  Report Type: 
  Country: None (occurrence: None)
  Receive Date: 20120301
  Receipt Date: 20120223
  Transmission Date: 20120608
  Serious: Yes (Hospitalization)
  Sender: FDA-Public Use
  Company Number: CA-JNJFOC-20120212335

PATIENT
  Sex: Female
  Weight: 65 kg

DRUGS (7)
  1. LITHIUM CARBONATE [Concomitant]
     Route: 065
  2. REMICADE [Suspect]
     Indication: COLITIS ULCERATIVE
     Route: 042
     Dates: start: 20120104
  3. REMICADE [Suspect]
     Dosage: HAD 4 INFUSIONS
     Route: 042
     Dates: start: 20111101
  4. IRON [Concomitant]
     Route: 065
  5. DEPO-PROVERA [Concomitant]
     Route: 065
  6. NEXIUM [Concomitant]
     Route: 065
  7. TRAMADOL HCL [Concomitant]
     Route: 065

REACTIONS (1)
  - MIGRAINE [None]
